FAERS Safety Report 11723603 (Version 2)
Quarter: 2015Q4

REPORT INFORMATION
  Report Type: Spontaneous
  Country: RO (occurrence: RO)
  Receive Date: 20151111
  Receipt Date: 20151217
  Transmission Date: 20160304
  Serious: Yes (Hospitalization, Other)
  Sender: FDA-Public Use
  Company Number: RO-PFIZER INC-2015365874

PATIENT
  Age: 34 Year
  Sex: Male

DRUGS (3)
  1. EPIRUBICIN HCL [Suspect]
     Active Substance: EPIRUBICIN HYDROCHLORIDE
     Indication: ADENOCARCINOMA GASTRIC
     Dosage: 50 MG/MP = 100 MG, IV DAY 1, EVERY 3 WEEKS
     Route: 042
     Dates: start: 201401
  2. OXALIPLATIN. [Suspect]
     Active Substance: OXALIPLATIN
     Indication: ADENOCARCINOMA GASTRIC
     Dosage: 130 MG/MP = 260 MG, IV DAY 1, EVERY 3 WEEKS
     Route: 042
     Dates: start: 201401
  3. CAPECITABINE. [Concomitant]
     Active Substance: CAPECITABINE
     Indication: ADENOCARCINOMA GASTRIC
     Dosage: 1000 MG/MP = 2000 MG,PO DAILY, EVERY 3 WEEKS
     Route: 048
     Dates: start: 201401

REACTIONS (1)
  - Generalised tonic-clonic seizure [Recovered/Resolved]

NARRATIVE: CASE EVENT DATE: 20140313
